FAERS Safety Report 10285535 (Version 1)
Quarter: 2014Q3

REPORT INFORMATION
  Report Type: Spontaneous
  Country: CA (occurrence: CA)
  Receive Date: 20140709
  Receipt Date: 20140709
  Transmission Date: 20150326
  Serious: Yes (Other)
  Sender: FDA-Public Use
  Company Number: CA-ROCHE-1430960

PATIENT
  Age: 48 Year
  Sex: Male
  Weight: 84 kg

DRUGS (10)
  1. DIPHENHYDRAMINE HYDROCHLORIDE. [Concomitant]
     Active Substance: DIPHENHYDRAMINE HYDROCHLORIDE
     Dosage: INJECTION USP
     Route: 030
  2. METHYLPREDNISOLONE [Concomitant]
     Active Substance: METHYLPREDNISOLONE
  3. TYLENOL #1 (CANADA) [Concomitant]
     Active Substance: ACETAMINOPHEN\CAFFEINE\CODEINE PHOSPHATE
     Route: 065
  4. ALENDRONATE [Suspect]
     Active Substance: ALENDRONATE SODIUM
     Indication: PRODUCT USED FOR UNKNOWN INDICATION
     Route: 065
  5. ACETAMINOPHEN. [Concomitant]
     Active Substance: ACETAMINOPHEN
     Route: 065
  6. ZOPICLONE TABLETS [Concomitant]
     Route: 065
  7. RITUXAN [Suspect]
     Active Substance: RITUXIMAB
     Indication: PRODUCT USED FOR UNKNOWN INDICATION
     Route: 042
  8. ADVIL [Concomitant]
     Active Substance: IBUPROFEN
     Route: 065
  9. ROBAXACET [Suspect]
     Active Substance: ACETAMINOPHEN\METHOCARBAMOL
     Indication: PRODUCT USED FOR UNKNOWN INDICATION
     Route: 065
  10. NUCYNTA [Concomitant]
     Active Substance: TAPENTADOL HYDROCHLORIDE
     Route: 065

REACTIONS (6)
  - Dizziness [Not Recovered/Not Resolved]
  - Weight increased [Not Recovered/Not Resolved]
  - Bone density decreased [Not Recovered/Not Resolved]
  - Nausea [Not Recovered/Not Resolved]
  - Ocular pemphigoid [Not Recovered/Not Resolved]
  - Pemphigoid [Not Recovered/Not Resolved]
